FAERS Safety Report 19500836 (Version 1)
Quarter: 2021Q3

REPORT INFORMATION
  Report Type: Spontaneous
  Country: US (occurrence: US)
  Receive Date: 20210706
  Receipt Date: 20210706
  Transmission Date: 20211014
  Serious: No
  Sender: FDA-Public Use
  Company Number: None

PATIENT
  Age: 33 Year
  Sex: Female
  Weight: 86 kg

DRUGS (1)
  1. CYCLOPHOSPHAMIDE. [Suspect]
     Active Substance: CYCLOPHOSPHAMIDE
     Indication: POLYARTERITIS NODOSA
     Dosage: ?          OTHER FREQUENCY:Q2W;?
     Route: 042
     Dates: start: 20210621

REACTIONS (4)
  - Somnolence [None]
  - Feeling abnormal [None]
  - Hypoaesthesia [None]
  - Infusion related reaction [None]

NARRATIVE: CASE EVENT DATE: 20210621
